FAERS Safety Report 9116638 (Version 1)
Quarter: 2013Q1

REPORT INFORMATION
  Report Type: Spontaneous
  Country: BR (occurrence: BR)
  Receive Date: 20130225
  Receipt Date: 20130225
  Transmission Date: 20140127
  Serious: Yes (Other)
  Sender: FDA-Public Use
  Company Number: PHHY2012BR071236

PATIENT
  Sex: Female

DRUGS (2)
  1. DIOVAN [Suspect]
     Indication: BLOOD PRESSURE ABNORMAL
  2. PURAN T4 [Concomitant]
     Indication: HYPOTHYROIDISM
     Dosage: 15 MG, QD

REACTIONS (4)
  - Diabetes mellitus [Unknown]
  - Throat irritation [Unknown]
  - Nasopharyngitis [Unknown]
  - Cough [Unknown]
